FAERS Safety Report 6676526-7 (Version None)
Quarter: 2010Q2

REPORT INFORMATION
  Report Type: 
  Country: None (occurrence: None)
  Receive Date: 20100412
  Receipt Date: 20100406
  Transmission Date: 20101027
  Serious: Yes (Hospitalization)
  Sender: FDA-Public Use
  Company Number: US-SANOFI-AVENTIS-2010SA019910

PATIENT
  Age: 65 Year
  Sex: Female

DRUGS (4)
  1. MULTAQ [Suspect]
     Route: 048
  2. TIKOSYN [Concomitant]
  3. TIKOSYN [Concomitant]
  4. SPIRONOLACTONE [Concomitant]

REACTIONS (4)
  - BLOOD POTASSIUM INCREASED [None]
  - CARDIAC FAILURE CONGESTIVE [None]
  - CONDITION AGGRAVATED [None]
  - RENAL IMPAIRMENT [None]
